FAERS Safety Report 4600869-1 (Version None)
Quarter: 2005Q1

REPORT INFORMATION
  Report Type: 
  Country: None (occurrence: None)
  Receive Date: 20050204
  Receipt Date: 20040503
  Transmission Date: 20050727
  Serious: Yes (Other)
  Sender: FDA-Public Use
  Company Number: USA-2002-008070

PATIENT
  Age: 22 Year
  Sex: Female
  Weight: 52.2 kg

DRUGS (2)
  1. MIRENA [Suspect]
     Indication: CONTRACEPTION
     Dosage: 20 MICROG, CONT, INTRA-UTERINE
     Route: 015
     Dates: start: 20011016, end: 20021206
  2. MIRENA [Suspect]
     Indication: CONTRACEPTION
     Dosage: 20 MICROG, CONT, INTRA-UTERINE
     Route: 015
     Dates: start: 20021206

REACTIONS (3)
  - ANTEPARTUM HAEMORRHAGE [None]
  - BLOOD HUMAN CHORIONIC GONADOTROPIN ABNORMAL [None]
  - PREGNANCY WITH CONTRACEPTIVE DEVICE [None]
